FAERS Safety Report 15734372 (Version 2)
Quarter: 2019Q4

REPORT INFORMATION
  Report Type: Report from Study
  Country: JP (occurrence: JP)
  Receive Date: 20181218
  Receipt Date: 20191025
  Transmission Date: 20200122
  Serious: Yes (Death, Life-Threatening, Hospitalization, Other)
  Sender: FDA-Public Use
  Company Number: JP-VIIV HEALTHCARE LIMITED-JP2018JPN226113

PATIENT
  Age: 4 Decade
  Sex: Female

DRUGS (79)
  1. ONOACT [Concomitant]
     Active Substance: LANDIOLOL HYDROCHLORIDE
     Dosage: UNK
     Dates: start: 20170718, end: 20170731
  2. DOBUPUM INJECTION [Concomitant]
     Indication: SEPTIC SHOCK
     Dosage: UNK
     Dates: start: 20170713, end: 20170718
  3. PITRESSIN (VASOPRESSIN) [Concomitant]
     Indication: SEPTIC SHOCK
     Dosage: UNK
     Dates: start: 20170712, end: 20170715
  4. SODIUM PHOSPHATE CORRECTIVE INJECTION [Concomitant]
     Dosage: UNK
     Dates: start: 20170921, end: 20170921
  5. TAZOPIPE COMBINATION INTRAVENOUS INJECTION [Suspect]
     Active Substance: PIPERACILLIN SODIUM\TAZOBACTAM SODIUM
     Dosage: UNK
     Route: 042
     Dates: start: 20170912, end: 20170915
  6. ONDANSETRON HYDROCHLORIDE HYDRATE [Concomitant]
     Indication: PROPHYLAXIS
     Dosage: UNK
     Dates: start: 20170703, end: 20170703
  7. ONDANSETRON HYDROCHLORIDE HYDRATE [Concomitant]
     Dosage: UNK
     Dates: start: 20170725, end: 20170725
  8. AMBROXOL HYDROCHLORIDE SYRUP [Concomitant]
     Indication: PROPHYLAXIS
     Dosage: UNK
     Dates: start: 20170726, end: 20170904
  9. FENTANYL CITRATE INJECTION [Concomitant]
     Active Substance: FENTANYL CITRATE
     Indication: PROPHYLAXIS
     Dosage: UNK
     Dates: start: 20170705, end: 20171004
  10. FUROSEMIDE. [Concomitant]
     Active Substance: FUROSEMIDE
     Dosage: UNK
     Dates: start: 20170809, end: 20170809
  11. SODIUM PHOSPHATE CORRECTIVE INJECTION [Concomitant]
     Dosage: UNK
     Dates: start: 20170828, end: 20170828
  12. SODIUM PHOSPHATE CORRECTIVE INJECTION [Concomitant]
     Dosage: UNK
     Dates: start: 20170917, end: 20170917
  13. TAZOPIPE COMBINATION INTRAVENOUS INJECTION [Suspect]
     Active Substance: PIPERACILLIN SODIUM\TAZOBACTAM SODIUM
     Dosage: UNK
     Route: 042
     Dates: start: 20170824, end: 20170907
  14. ALDACTONE A [Concomitant]
     Active Substance: SPIRONOLACTONE
     Dosage: UNK
     Dates: start: 20170707, end: 20170810
  15. DAIPHEN COMBINATION TABLETS [Concomitant]
     Dosage: UNK
     Dates: start: 20170822, end: 20170824
  16. CEFTRIAXONE SODIUM FOR INJECTION [Concomitant]
     Dosage: UNK
     Dates: start: 20170704, end: 20170710
  17. OMEPRAZOLE INJECTION [Concomitant]
     Indication: PROPHYLAXIS
     Dosage: UNK
     Dates: start: 20171010, end: 20171010
  18. NORADRENALINE INJECTION [Concomitant]
     Dosage: UNK
     Dates: start: 20170705, end: 20170916
  19. FUROSEMIDE. [Concomitant]
     Active Substance: FUROSEMIDE
     Dosage: UNK
     Dates: start: 20170904, end: 20170904
  20. FUROSEMIDE. [Concomitant]
     Active Substance: FUROSEMIDE
     Dosage: UNK
     Dates: start: 20170924, end: 20170924
  21. HEPARIN SODIUM INJECTION [Concomitant]
     Active Substance: HEPARIN SODIUM
     Dosage: UNK
     Dates: start: 20170908, end: 20171003
  22. DOLUTEGRAVIR [Suspect]
     Active Substance: DOLUTEGRAVIR
     Dosage: 50 MG, 1D
     Route: 048
     Dates: start: 20170822, end: 20170908
  23. CRAVIT [Suspect]
     Active Substance: LEVOFLOXACIN
     Dosage: UNK
     Route: 048
     Dates: start: 20170830, end: 20170904
  24. CRAVIT [Suspect]
     Active Substance: LEVOFLOXACIN
     Dosage: UNK
     Route: 041
     Dates: start: 20170810, end: 20170814
  25. FUNGUARD INFUSION [Suspect]
     Active Substance: MICAFUNGIN SODIUM
     Dosage: UNK
     Route: 041
     Dates: start: 20170903, end: 20170905
  26. CARBOCISTEINE SYRUP [Concomitant]
     Indication: PROPHYLAXIS
     Dosage: UNK
     Dates: start: 20170726, end: 20170904
  27. NEXIUM CAPSULE [Concomitant]
     Indication: PROPHYLAXIS
     Dosage: UNK
     Dates: start: 20170706, end: 20170904
  28. DIAMOX SEQUELS [Concomitant]
     Active Substance: ACETAZOLAMIDE
     Dosage: UNK
     Dates: start: 20170724, end: 20170728
  29. PANTOL INJECTION (DEXPANTHENOL) [Concomitant]
     Indication: PROPHYLAXIS
     Dosage: UNK
     Dates: start: 20170716, end: 20170809
  30. PANTOL INJECTION (DEXPANTHENOL) [Concomitant]
     Dosage: UNK
     Dates: start: 20170912, end: 20171005
  31. FUROSEMIDE. [Concomitant]
     Active Substance: FUROSEMIDE
     Dosage: UNK
     Dates: start: 20170730, end: 20170804
  32. HEPARIN SODIUM INJECTION [Concomitant]
     Active Substance: HEPARIN SODIUM
     Dosage: UNK
     Dates: start: 20170817, end: 20170824
  33. SODIUM PHOSPHATE CORRECTIVE INJECTION [Concomitant]
     Indication: PROPHYLAXIS
     Dosage: UNK
     Dates: start: 20170719, end: 20170721
  34. FLUCONAZOLE. [Suspect]
     Active Substance: FLUCONAZOLE
     Dosage: UNK
     Route: 048
     Dates: start: 20170905, end: 20170908
  35. TEICOPLANIN INJECTON [Suspect]
     Active Substance: TEICOPLANIN
     Dosage: UNK
     Route: 041
     Dates: start: 20170712, end: 20170717
  36. TEICOPLANIN INJECTON [Suspect]
     Active Substance: TEICOPLANIN
     Dosage: UNK
     Route: 041
     Dates: start: 20170822, end: 20170823
  37. DAIPHEN COMBINATION TABLETS [Concomitant]
     Indication: PROPHYLAXIS
     Dosage: UNK
     Dates: start: 20170706, end: 20170712
  38. ONDANSETRON HYDROCHLORIDE HYDRATE [Concomitant]
     Dosage: UNK
     Dates: start: 20170925, end: 20170925
  39. GASTER INJECTION [Concomitant]
     Indication: PROPHYLAXIS
     Dosage: UNK
     Dates: start: 20170916, end: 20171010
  40. MIYA-BM FINE GRANULES [Concomitant]
     Indication: PROPHYLAXIS
     Dosage: UNK
     Dates: start: 20170719, end: 20170904
  41. FUROSEMIDE. [Concomitant]
     Active Substance: FUROSEMIDE
     Dosage: UNK
     Dates: start: 20170707, end: 20170711
  42. PRECEDEX [Concomitant]
     Active Substance: DEXMEDETOMIDINE HYDROCHLORIDE
     Indication: PROPHYLAXIS
     Dosage: UNK
     Dates: start: 20170712, end: 20170717
  43. CARBAZOCHROME SULFONATE NA [Concomitant]
     Indication: PROPHYLAXIS
     Dosage: UNK
     Dates: start: 20170704, end: 20170709
  44. DOLUTEGRAVIR [Suspect]
     Active Substance: DOLUTEGRAVIR
     Indication: HIV INFECTION
     Dosage: 50 MG, 1D
     Route: 048
     Dates: start: 20170714, end: 20170810
  45. CRAVIT [Suspect]
     Active Substance: LEVOFLOXACIN
     Dosage: UNK
     Route: 041
     Dates: start: 20170822, end: 20170824
  46. TAZOPIPE COMBINATION INTRAVENOUS INJECTION [Suspect]
     Active Substance: PIPERACILLIN SODIUM\TAZOBACTAM SODIUM
     Dosage: UNK
     Route: 042
     Dates: start: 20170809, end: 20170810
  47. GENVOYA [Concomitant]
     Active Substance: COBICISTAT\ELVITEGRAVIR\EMTRICITABINE\TENOFOVIR ALAFENAMIDE FUMARATE
     Indication: HIV INFECTION
     Dosage: 1 DF, 1D
     Dates: start: 20170811, end: 20170822
  48. BIOFERMIN R (JAPAN) [Concomitant]
     Indication: PROPHYLAXIS
     Dosage: UNK
     Dates: start: 20170719, end: 20170904
  49. ONDANSETRON HYDROCHLORIDE HYDRATE [Concomitant]
     Dosage: UNK
     Dates: start: 20170710, end: 20170710
  50. ONDANSETRON HYDROCHLORIDE HYDRATE [Concomitant]
     Dosage: UNK
     Dates: start: 20170718, end: 20170718
  51. DIAMOX SEQUELS [Concomitant]
     Active Substance: ACETAZOLAMIDE
     Dosage: UNK
     Dates: start: 20170711, end: 20170711
  52. DIAMOX SEQUELS [Concomitant]
     Active Substance: ACETAZOLAMIDE
     Dosage: UNK
     Dates: start: 20170821, end: 20170823
  53. FAMOTIDINE. [Concomitant]
     Active Substance: FAMOTIDINE
     Indication: PROPHYLAXIS
     Dosage: UNK
     Dates: start: 20170905, end: 20170911
  54. FILGRASTIM BS INJECTION [Concomitant]
     Dosage: UNK
     Dates: start: 20170928, end: 20171003
  55. FUROSEMIDE. [Concomitant]
     Active Substance: FUROSEMIDE
     Dosage: UNK
     Dates: start: 20170716, end: 20170724
  56. SODIUM PHOSPHATE CORRECTIVE INJECTION [Concomitant]
     Dosage: UNK
     Dates: start: 20170810, end: 20170810
  57. SODIUM PHOSPHATE CORRECTIVE INJECTION [Concomitant]
     Dosage: UNK
     Dates: start: 20170831, end: 20170907
  58. FLUCONAZOLE. [Suspect]
     Active Substance: FLUCONAZOLE
     Dosage: UNK
     Route: 048
     Dates: start: 20170915, end: 20170919
  59. FLUCONAZOLE. [Suspect]
     Active Substance: FLUCONAZOLE
     Dosage: UNK
     Route: 042
     Dates: start: 20170912, end: 20170914
  60. TEICOPLANIN INJECTON [Suspect]
     Active Substance: TEICOPLANIN
     Dosage: UNK
     Route: 041
     Dates: start: 20170912, end: 20170913
  61. FILGRASTIM BS INJECTION [Concomitant]
     Indication: PROPHYLAXIS
     Dosage: UNK
     Dates: start: 20170720, end: 20170721
  62. PRECEDEX [Concomitant]
     Active Substance: DEXMEDETOMIDINE HYDROCHLORIDE
     Dosage: UNK
     Dates: start: 20170813, end: 20170815
  63. SODIUM PHOSPHATE CORRECTIVE INJECTION [Concomitant]
     Dosage: UNK
     Dates: start: 20170928, end: 20170930
  64. DOLUTEGRAVIR [Suspect]
     Active Substance: DOLUTEGRAVIR
     Dosage: 100 MG, 1D
     Route: 048
     Dates: start: 20170920, end: 20171005
  65. CRAVIT [Suspect]
     Active Substance: LEVOFLOXACIN
     Dosage: UNK
     Route: 048
     Dates: start: 20170815, end: 20170816
  66. DESCOVY [Suspect]
     Active Substance: EMTRICITABINE\TENOFOVIR ALAFENAMIDE FUMARATE
     Indication: HIV INFECTION
     Dosage: 1 DF, 1D
     Route: 048
     Dates: start: 20170714, end: 20170810
  67. TEICOPLANIN INJECTON [Suspect]
     Active Substance: TEICOPLANIN
     Dosage: UNK
     Route: 041
     Dates: start: 20170901, end: 20170906
  68. DAIPHEN COMBINATION TABLETS [Concomitant]
     Dosage: UNK
     Dates: start: 20170811, end: 20170816
  69. FUROSEMIDE. [Concomitant]
     Active Substance: FUROSEMIDE
     Dosage: UNK
     Dates: start: 20170812, end: 20170812
  70. FUROSEMIDE. [Concomitant]
     Active Substance: FUROSEMIDE
     Dosage: UNK
     Dates: start: 20170908, end: 20170908
  71. PRECEDEX [Concomitant]
     Active Substance: DEXMEDETOMIDINE HYDROCHLORIDE
     Dosage: UNK
     Dates: start: 20170911, end: 20171002
  72. HEPARIN SODIUM INJECTION [Concomitant]
     Active Substance: HEPARIN SODIUM
     Indication: PROPHYLAXIS
     Dosage: UNK
     Dates: start: 20170712, end: 20170810
  73. DESCOVY [Suspect]
     Active Substance: EMTRICITABINE\TENOFOVIR ALAFENAMIDE FUMARATE
     Dosage: 1 DF, 1D
     Route: 048
     Dates: start: 20170822, end: 20170908
  74. TAZOPIPE COMBINATION INTRAVENOUS INJECTION [Suspect]
     Active Substance: PIPERACILLIN SODIUM\TAZOBACTAM SODIUM
     Indication: DIARRHOEA
     Dosage: UNK
     Route: 042
     Dates: start: 20170709, end: 20170806
  75. ONDANSETRON HYDROCHLORIDE HYDRATE [Concomitant]
     Dosage: UNK
     Dates: start: 20170802, end: 20170802
  76. ONDANSETRON HYDROCHLORIDE HYDRATE [Concomitant]
     Dosage: UNK
     Dates: start: 20170907, end: 20170907
  77. ONDANSETRON HYDROCHLORIDE HYDRATE [Concomitant]
     Dosage: UNK
     Dates: start: 20170915, end: 20170915
  78. DIPRIVAN INJECTION [Concomitant]
     Indication: PROPHYLAXIS
     Dosage: UNK
     Dates: start: 20170714, end: 20171004
  79. PROPOFOL. [Concomitant]
     Active Substance: PROPOFOL
     Indication: PROPHYLAXIS
     Dosage: UNK
     Dates: start: 20170705, end: 20170712

REACTIONS (6)
  - Pseudomonas infection [Not Recovered/Not Resolved]
  - Renal impairment [Not Recovered/Not Resolved]
  - Kaposi^s sarcoma [Recovering/Resolving]
  - Diarrhoea [Recovered/Resolved]
  - Organising pneumonia [Not Recovered/Not Resolved]
  - Cerebral haemorrhage [Fatal]

NARRATIVE: CASE EVENT DATE: 20170731
